FAERS Safety Report 4676919-3 (Version None)
Quarter: 2005Q2

REPORT INFORMATION
  Report Type: 
  Country: None (occurrence: None)
  Receive Date: 20050527
  Receipt Date: 20041230
  Transmission Date: 20051028
  Serious: Yes (Hospitalization)
  Sender: FDA-Public Use
  Company Number: FI-ABBOTT-05P-055-0285210-00

PATIENT
  Age: 69 Year
  Sex: Female

DRUGS (6)
  1. HUMIRA [Suspect]
     Indication: RHEUMATOID ARTHRITIS
     Route: 058
     Dates: start: 20040601, end: 20050430
  2. HUMIRA [Suspect]
  3. NALTREXONE HYDROCHLORIDE [Concomitant]
     Indication: RHEUMATOID ARTHRITIS
     Route: 048
  4. ALENDRONATE SODIUM [Concomitant]
     Indication: OSTEOPOROSIS
     Route: 048
  5. LEKOVIT CA [Concomitant]
     Indication: OSTEOPOROSIS
     Dosage: 500 MG/10 UG TWICE DAILY
     Route: 048
  6. OXICLORIN [Concomitant]
     Indication: DRUG USE FOR UNKNOWN INDICATION

REACTIONS (4)
  - GRANULOMA [None]
  - LUNG DISORDER [None]
  - TUBERCULOSIS [None]
  - TUBERCULOSIS OF PERIPHERAL LYMPH NODES [None]
